FAERS Safety Report 23584110 (Version 2)
Quarter: 2024Q1

REPORT INFORMATION
  Report Type: Spontaneous
  Country: US (occurrence: US)
  Receive Date: 20240301
  Receipt Date: 20240313
  Transmission Date: 20240409
  Serious: Yes (Other)
  Sender: FDA-Public Use
  Company Number: US-BRISTOL-MYERS SQUIBB COMPANY-2024-032955

PATIENT
  Age: 66 Year
  Sex: Female

DRUGS (1)
  1. POMALYST [Suspect]
     Active Substance: POMALIDOMIDE
     Indication: Plasma cell myeloma
     Dosage: TAKE 1 WHOLE CAPSULE BY MOUTH WITH WATER ONCE DAILY FOR 21 DAYS, THEN OFF FOR 7 DAYS EVERY 28 DAY CY
     Route: 048

REACTIONS (3)
  - Malaise [Not Recovered/Not Resolved]
  - Abdominal distension [Recovering/Resolving]
  - Muscle spasms [Recovering/Resolving]
